FAERS Safety Report 23037539 (Version 2)
Quarter: 2024Q4

REPORT INFORMATION
  Report Type: Spontaneous
  Country: US (occurrence: US)
  Receive Date: 20231006
  Receipt Date: 20241110
  Transmission Date: 20250114
  Serious: No
  Sender: SANOFI AVENTIS
  Company Number: US-SA-SAC20230929000981

PATIENT
  Age: 48 Year
  Sex: Female
  Weight: 73.4 kg

DRUGS (2)
  1. DUPIXENT [Suspect]
     Active Substance: DUPILUMAB
     Indication: Asthma
     Dosage: 150 MG/ML, QOW
     Route: 058
  2. DUPIXENT [Suspect]
     Active Substance: DUPILUMAB
     Indication: Illness

REACTIONS (4)
  - Cough [Unknown]
  - Sneezing [Unknown]
  - Hypersensitivity [Unknown]
  - Product dose omission issue [Unknown]

NARRATIVE: CASE EVENT DATE: 20241001
